FAERS Safety Report 11224862 (Version 1)
Quarter: 2015Q2

REPORT INFORMATION
  Report Type: Spontaneous
  Country: US (occurrence: None)
  Receive Date: 20150626
  Receipt Date: 20150626
  Transmission Date: 20150821
  Serious: No
  Sender: FDA-Public Use
  Company Number: None

PATIENT
  Age: 58 Year
  Sex: Male

DRUGS (2)
  1. SUTENT [Suspect]
     Active Substance: SUNITINIB MALATE
     Indication: RENAL CANCER
     Dosage: 1 CAPSULE DAILY WITH 12.5MG CAP 4 WEEKS ON 2 WEEKS OF PO
     Route: 048
     Dates: start: 20130816
  2. SUTENT [Suspect]
     Active Substance: SUNITINIB MALATE
     Indication: RENAL CANCER
     Dosage: 1 CAPSULE DAILY WITH 25MG CAP 4 WEEKS ON 2 WEEKS OF PO
     Route: 048
     Dates: start: 20130816

REACTIONS (1)
  - Hypertension [None]

NARRATIVE: CASE EVENT DATE: 20150624
